FAERS Safety Report 19858623 (Version 1)
Quarter: 2021Q3

REPORT INFORMATION
  Report Type: Spontaneous
  Country: US (occurrence: US)
  Receive Date: 20210921
  Receipt Date: 20210921
  Transmission Date: 20211014
  Serious: No
  Sender: FDA-Public Use
  Company Number: US-AUROBINDO-AUR-APL-2021-007851

PATIENT
  Sex: Female

DRUGS (3)
  1. ALENDRONATE SODIUM TABLETS [Suspect]
     Active Substance: ALENDRONATE SODIUM
     Indication: PRODUCT USED FOR UNKNOWN INDICATION
     Dosage: UNK UNK, EVERY WEEK (LAST NOV)
     Route: 065
  2. ALENDRONATE SODIUM TABLETS [Suspect]
     Active Substance: ALENDRONATE SODIUM
     Dosage: 09?FEB?2021/16?FEB?2021
     Route: 065
  3. ALENDRONATE SODIUM TABLETS [Suspect]
     Active Substance: ALENDRONATE SODIUM
     Dosage: UNK UNK, EVERY WEEK
     Route: 065
     Dates: start: 20210219

REACTIONS (1)
  - Inappropriate schedule of product administration [Unknown]
